FAERS Safety Report 9625548 (Version 1)
Quarter: 2013Q4

REPORT INFORMATION
  Report Type: Spontaneous
  Country: US (occurrence: None)
  Receive Date: 20131015
  Receipt Date: 20131015
  Transmission Date: 20140711
  Serious: No
  Sender: FDA-Public Use
  Company Number: None

PATIENT
  Age: 44 Year
  Sex: Female

DRUGS (6)
  1. TECFIDERA [Suspect]
     Indication: MULTIPLE SCLEROSIS
     Dosage: 120MG FOR 7 DAYS THEN 240MG, BID, ORAL
     Route: 048
     Dates: start: 20130917, end: 20131014
  2. CHLORTHALIDONE [Concomitant]
  3. DILTIAZEM [Concomitant]
  4. WELLBUTRIN [Concomitant]
  5. POTASSIUM CHLORIDE [Concomitant]
  6. ALLERGY MED [Concomitant]

REACTIONS (2)
  - Flushing [None]
  - Abdominal discomfort [None]
